FAERS Safety Report 6248675-9 (Version None)
Quarter: 2009Q2

REPORT INFORMATION
  Report Type: 
  Country: None (occurrence: None)
  Receive Date: 20090624
  Receipt Date: 20090624
  Transmission Date: 20091009
  Serious: Yes (Life-Threatening)
  Sender: FDA-Public Use
  Company Number: None

PATIENT
  Age: 83 Year
  Sex: Female
  Weight: 72 kg

DRUGS (4)
  1. FENTANYL-100 [Suspect]
     Indication: SEDATION
     Dosage: 25 + 75 MCG IV
     Route: 042
     Dates: start: 20090502
  2. INSULIN [Concomitant]
  3. LANSOPRAZOLE [Concomitant]
  4. MIDAZOLAM HCL [Concomitant]

REACTIONS (2)
  - LABILE BLOOD PRESSURE [None]
  - MEAN ARTERIAL PRESSURE DECREASED [None]
